FAERS Safety Report 9261687 (Version 2)
Quarter: 2013Q3

REPORT INFORMATION
  Report Type: Spontaneous
  Country: US (occurrence: US)
  Receive Date: 20130429
  Receipt Date: 20130903
  Transmission Date: 20140515
  Serious: Yes (Hospitalization)
  Sender: FDA-Public Use
  Company Number: US-GILEAD-2013-0074221

PATIENT
  Age: 75 Year
  Sex: Female

DRUGS (1)
  1. LETAIRIS [Suspect]
     Indication: PRODUCT USED FOR UNKNOWN INDICATION
     Dosage: 10 MG, QD
     Route: 048
     Dates: start: 20091224

REACTIONS (6)
  - Syncope [Unknown]
  - Feeling abnormal [Unknown]
  - Dyspnoea exertional [Unknown]
  - Dizziness [Not Recovered/Not Resolved]
  - Surgery [Unknown]
  - Fall [Unknown]
